FAERS Safety Report 9046752 (Version 3)
Quarter: 2013Q1

REPORT INFORMATION
  Report Type: Spontaneous
  Country: US (occurrence: US)
  Receive Date: 20130204
  Receipt Date: 20130306
  Transmission Date: 20140127
  Serious: No
  Sender: FDA-Public Use
  Company Number: US-BIOGENIDEC-2013BI008790

PATIENT
  Age: 43 None
  Sex: Male

DRUGS (1)
  1. TYSABRI [Suspect]
     Indication: MULTIPLE SCLEROSIS
     Route: 042
     Dates: start: 20070418, end: 20121011

REACTIONS (4)
  - Poor venous access [Not Recovered/Not Resolved]
  - Malaise [Unknown]
  - Central venous catheterisation [Recovered/Resolved]
  - Rash pruritic [Not Recovered/Not Resolved]
